FAERS Safety Report 18204091 (Version 1)
Quarter: 2020Q3

REPORT INFORMATION
  Report Type: Report from Study
  Country: CN (occurrence: CN)
  Receive Date: 20200827
  Receipt Date: 20200827
  Transmission Date: 20201103
  Serious: Yes (Other)
  Sender: FDA-Public Use
  Company Number: CN-JNJFOC-20200830510

PATIENT

DRUGS (1)
  1. RISPERDAL [Suspect]
     Active Substance: RISPERIDONE
     Indication: SCHIZOPHRENIA
     Dosage: 4?5 MG
     Route: 048

REACTIONS (5)
  - Dry mouth [Unknown]
  - Constipation [Unknown]
  - Somnolence [Unknown]
  - Renal impairment [Unknown]
  - Vision blurred [Unknown]
